FAERS Safety Report 13788895 (Version 2)
Quarter: 2017Q3

REPORT INFORMATION
  Report Type: Spontaneous
  Country: CH (occurrence: CH)
  Receive Date: 20170725
  Receipt Date: 20170828
  Transmission Date: 20171127
  Serious: Yes (Hospitalization)
  Sender: FDA-Public Use
  Company Number: CH-CONCORDIA PHARMACEUTICALS INC.-GSH201707-004255

PATIENT
  Age: 56 Year
  Sex: Male

DRUGS (16)
  1. ASPIRIN CARDIO [Concomitant]
     Active Substance: ASPIRIN
  2. HUMALOG [Concomitant]
     Active Substance: INSULIN LISPRO
  3. LANTUS [Concomitant]
     Active Substance: INSULIN GLARGINE
  4. PHYSIOTENS [Concomitant]
     Active Substance: MOXONIDINE
  5. NOPIL [Concomitant]
     Active Substance: SULFAMETHOXAZOLE\TRIMETHOPRIM
  6. CELLCEPT [Concomitant]
     Active Substance: MYCOPHENOLATE MOFETIL\MYCOPHENOLATE MOFETIL HYDROCHLORIDE
  7. PREDNISON [Concomitant]
     Active Substance: PREDNISONE
  8. VITAMIN D3 [Concomitant]
     Active Substance: CHOLECALCIFEROL
  9. NEPHROTRANS [Concomitant]
     Active Substance: SODIUM BICARBONATE
  10. PROGRAF [Concomitant]
     Active Substance: TACROLIMUS\TACROLIMUS ANHYDROUS
  11. POLYSTYRENE SULFONATE [Suspect]
     Active Substance: POLYSTYRENE SULFONIC ACID
     Indication: HYPERKALAEMIA
     Route: 048
     Dates: start: 20170606, end: 20170613
  12. PANTOZOL [Concomitant]
     Active Substance: PANTOPRAZOLE SODIUM
  13. CARDURA [Concomitant]
     Active Substance: DOXAZOSIN MESYLATE
  14. CRESTOR [Concomitant]
     Active Substance: ROSUVASTATIN CALCIUM
  15. CONCOR [Concomitant]
     Active Substance: BISOPROLOL FUMARATE
  16. AMLODIPIN [Concomitant]
     Active Substance: AMLODIPINE BESYLATE

REACTIONS (4)
  - Erosive duodenitis [Unknown]
  - Crystal deposit intestine [Unknown]
  - Gastrointestinal haemorrhage [Recovered/Resolved]
  - Haemorrhagic anaemia [Recovered/Resolved]

NARRATIVE: CASE EVENT DATE: 20170612
